FAERS Safety Report 10287061 (Version 1)
Quarter: 2014Q3

REPORT INFORMATION
  Report Type: Report from Study
  Country: CA (occurrence: CA)
  Receive Date: 20140709
  Receipt Date: 20140709
  Transmission Date: 20150326
  Serious: Yes (Hospitalization, Other)
  Sender: FDA-Public Use
  Company Number: PHHY2014CA083590

PATIENT
  Age: 53 Year
  Sex: Female

DRUGS (1)
  1. CLOZARIL [Suspect]
     Active Substance: CLOZAPINE
     Indication: SCHIZOPHRENIA
     Route: 048
     Dates: start: 20010730

REACTIONS (14)
  - Bacterial infection [Unknown]
  - Cholecystitis [Unknown]
  - Lethargy [Unknown]
  - Malaise [Unknown]
  - Decreased appetite [Unknown]
  - White blood cell count increased [Unknown]
  - Renal failure acute [Unknown]
  - Urinary tract infection [Unknown]
  - Confusional state [Unknown]
  - C-reactive protein increased [Unknown]
  - Headache [Unknown]
  - Lung infiltration [Unknown]
  - Drug level increased [Unknown]
  - Cholelithiasis [Unknown]

NARRATIVE: CASE EVENT DATE: 20140619
